FAERS Safety Report 8442738-5 (Version None)
Quarter: 2012Q2

REPORT INFORMATION
  Report Type: 
  Country: None (occurrence: None)
  Receive Date: 20120615
  Receipt Date: 20120605
  Transmission Date: 20120825
  Serious: Yes (Death)
  Sender: FDA-Public Use
  Company Number: ES-ROCHE-1075643

PATIENT
  Age: 55 Year
  Sex: Female

DRUGS (3)
  1. PREDNISONE TAB [Interacting]
     Indication: RENAL TRANSPLANT
     Route: 048
     Dates: start: 19980504, end: 20080724
  2. NEORAL [Interacting]
     Indication: RENAL TRANSPLANT
     Route: 048
     Dates: start: 19980504, end: 20080724
  3. CELLCEPT [Suspect]
     Indication: RENAL TRANSPLANT
     Route: 048
     Dates: start: 19980504, end: 20080724

REACTIONS (3)
  - PRECURSOR B-LYMPHOBLASTIC LYMPHOMA [None]
  - POST TRANSPLANT LYMPHOPROLIFERATIVE DISORDER [None]
  - CENTRAL NERVOUS SYSTEM LYMPHOMA [None]
